FAERS Safety Report 15163622 (Version 1)
Quarter: 2018Q3

REPORT INFORMATION
  Report Type: Report from Study
  Country: None (occurrence: US)
  Receive Date: 20180719
  Receipt Date: 20180719
  Transmission Date: 20181010
  Serious: Yes (Other)
  Sender: FDA-Public Use
  Company Number: US-ABBVIE-18K-163-2419154-00

PATIENT
  Age: 68 Year
  Sex: Female

DRUGS (2)
  1. HUMIRA [Suspect]
     Active Substance: ADALIMUMAB
     Indication: PSORIASIS
     Route: 058
     Dates: start: 2016, end: 2018
  2. HUMIRA [Suspect]
     Active Substance: ADALIMUMAB
     Indication: RHEUMATOID ARTHRITIS
     Route: 058
     Dates: start: 201803

REACTIONS (9)
  - Heart rate decreased [Recovered/Resolved]
  - Headache [Recovered/Resolved]
  - Rheumatoid arthritis [Not Recovered/Not Resolved]
  - Cardiac disorder [Unknown]
  - Viral infection [Recovered/Resolved]
  - Psoriasis [Not Recovered/Not Resolved]
  - Cough [Recovered/Resolved]
  - Injection site pain [Recovered/Resolved]
  - Blood pressure increased [Unknown]

NARRATIVE: CASE EVENT DATE: 201712
